FAERS Safety Report 11639178 (Version 1)
Quarter: 2015Q4

REPORT INFORMATION
  Report Type: Spontaneous
  Country: US (occurrence: US)
  Receive Date: 20151019
  Receipt Date: 20151019
  Transmission Date: 20160304
  Serious: Yes (Other)
  Sender: FDA-Public Use
  Company Number: US-ROCHE-1638557

PATIENT
  Sex: Female

DRUGS (1)
  1. XELODA [Suspect]
     Active Substance: CAPECITABINE
     Indication: NEOPLASM MALIGNANT
     Dosage: TAKE 3 BID
     Route: 048
     Dates: start: 20150917

REACTIONS (5)
  - Coma [Unknown]
  - Fatigue [Unknown]
  - Dyspnoea [Unknown]
  - Sinus operation [Unknown]
  - Pruritus [Unknown]
